FAERS Safety Report 7013785-5 (Version None)
Quarter: 2010Q3

REPORT INFORMATION
  Report Type: 
  Country: None (occurrence: None)
  Receive Date: 20100924
  Receipt Date: 20100915
  Transmission Date: 20110219
  Serious: Yes (Hospitalization, Other)
  Sender: FDA-Public Use
  Company Number: US-ABBOTT-10P-163-0671607-00

PATIENT
  Sex: Female
  Weight: 72.64 kg

DRUGS (3)
  1. DEPAKOTE [Suspect]
     Indication: PRODUCT USED FOR UNKNOWN INDICATION
     Dates: start: 20100701, end: 20100701
  2. SYNTHROID [Concomitant]
     Indication: BLOOD THYROID STIMULATING HORMONE DECREASED
     Dates: start: 20000101
  3. ARICEPT [Concomitant]
     Indication: DEMENTIA ALZHEIMER'S TYPE

REACTIONS (12)
  - ABDOMINAL PAIN UPPER [None]
  - BLOOD SODIUM DECREASED [None]
  - DRUG INEFFECTIVE [None]
  - FAECAL INCONTINENCE [None]
  - FEAR [None]
  - HEART RATE INCREASED [None]
  - HYPERTENSION [None]
  - INCOHERENT [None]
  - MUSCLE SPASMS [None]
  - MUSCULAR WEAKNESS [None]
  - NERVOUSNESS [None]
  - URINARY INCONTINENCE [None]
